FAERS Safety Report 14045069 (Version 1)
Quarter: 2017Q4

REPORT INFORMATION
  Report Type: Spontaneous
  Country: US (occurrence: US)
  Receive Date: 20171005
  Receipt Date: 20171005
  Transmission Date: 20180321
  Serious: Yes (Life-Threatening, Other)
  Sender: FDA-Public Use
  Company Number: US-CONCORDIA PHARMACEUTICALS INC.-GSH201710-005631

PATIENT
  Age: 64 Year
  Sex: Female

DRUGS (20)
  1. PREDNISONE. [Suspect]
     Active Substance: PREDNISONE
     Indication: INTERVERTEBRAL DISC DEGENERATION
  2. OMALIZUMAB. [Suspect]
     Active Substance: OMALIZUMAB
     Indication: ASTHMA
     Dates: start: 20160107
  3. PREDNISONE. [Suspect]
     Active Substance: PREDNISONE
     Indication: INFLAMMATION
  4. ALBUTEROL. [Concomitant]
     Active Substance: ALBUTEROL
  5. CARVEDILOL. [Suspect]
     Active Substance: CARVEDILOL
     Indication: MITRAL VALVE DISEASE
  6. VITAMIN D [Concomitant]
     Active Substance: CHOLECALCIFEROL
  7. NAPROXEN. [Concomitant]
     Active Substance: NAPROXEN
  8. LEFLUNOMIDE. [Concomitant]
     Active Substance: LEFLUNOMIDE
  9. VENTOLIN [Concomitant]
     Active Substance: ALBUTEROL SULFATE
  10. XANAX [Concomitant]
     Active Substance: ALPRAZOLAM
  11. HYDROXYCHLOROQUINE [Suspect]
     Active Substance: HYDROXYCHLOROQUINE
     Indication: RHEUMATOID ARTHRITIS
  12. OMALIZUMAB. [Suspect]
     Active Substance: OMALIZUMAB
     Indication: CHRONIC OBSTRUCTIVE PULMONARY DISEASE
     Route: 058
     Dates: start: 2012
  13. OMALIZUMAB. [Suspect]
     Active Substance: OMALIZUMAB
     Indication: SINUS DISORDER
     Dates: start: 20150921
  14. PRILOSEC [Concomitant]
     Active Substance: OMEPRAZOLE MAGNESIUM
  15. LEVOTHYROXINE. [Concomitant]
     Active Substance: LEVOTHYROXINE
  16. OMALIZUMAB. [Suspect]
     Active Substance: OMALIZUMAB
     Indication: OBSTRUCTIVE AIRWAYS DISORDER
  17. CORTISONE [Concomitant]
     Active Substance: CORTISONE\HYDROCORTISONE
  18. TIOTROPIUM BROMIDE [Concomitant]
     Active Substance: TIOTROPIUM BROMIDE
  19. DIFLUCAN [Concomitant]
     Active Substance: FLUCONAZOLE
     Indication: SINUS DISORDER
  20. LEXAPRO [Concomitant]
     Active Substance: ESCITALOPRAM OXALATE

REACTIONS (13)
  - Inflammation [Unknown]
  - Diabetes mellitus [Unknown]
  - Chest discomfort [Unknown]
  - Headache [Unknown]
  - Nodule [Unknown]
  - Back pain [Unknown]
  - Sinus congestion [Recovered/Resolved]
  - Candida infection [Unknown]
  - Hypoglycaemia [Unknown]
  - Malaise [Unknown]
  - Haemorrhage [Unknown]
  - Rheumatoid arthritis [Unknown]
  - Hand deformity [Unknown]
